FAERS Safety Report 8424138-7 (Version None)
Quarter: 2012Q2

REPORT INFORMATION
  Report Type: 
  Country: None (occurrence: None)
  Receive Date: 20120608
  Receipt Date: 20120308
  Transmission Date: 20120825
  Serious: No
  Sender: FDA-Public Use
  Company Number: US-ASTRAZENECA-2012SE16233

PATIENT
  Sex: Female

DRUGS (3)
  1. BUDESONIDE [Suspect]
     Indication: NASAL IRRIGATION
     Route: 055
  2. RHINOCORT [Suspect]
     Indication: ASTHMA
     Dosage: AT NIGHT
     Route: 045
     Dates: start: 20110801, end: 20110801
  3. SYMBICORT [Suspect]
     Indication: ASTHMA
     Dosage: 160/4.5 MCG TWO TIMES A DAY
     Route: 055
     Dates: start: 20110801

REACTIONS (2)
  - OFF LABEL USE [None]
  - EPISTAXIS [None]
